FAERS Safety Report 9244544 (Version 1)
Quarter: 2013Q1

REPORT INFORMATION
  Report Type: Spontaneous
  Country: US (occurrence: None)
  Receive Date: 20121128
  Receipt Date: 20121128
  Transmission Date: 20140127
  Serious: Yes (Other)
  Sender: FDA-Public Use
  Company Number: KAD201111-000058

PATIENT
  Age: 52 Year
  Sex: Male
  Weight: 81.65 kg

DRUGS (3)
  1. INTERFERON ALFACON-1 [Suspect]
     Indication: HEPATITIS C
     Route: 058
     Dates: start: 20110626
  2. RIBAVIRIN [Suspect]
     Indication: HEPATITIS C
     Route: 048
     Dates: start: 20110626
  3. ALINIA [Suspect]
     Indication: HEPATITIS C
     Route: 048
     Dates: start: 20110626

REACTIONS (5)
  - Neutrophil count decreased [None]
  - Haemoglobin decreased [None]
  - Chills [None]
  - Pain [None]
  - Medication error [None]
